FAERS Safety Report 10671618 (Version 8)
Quarter: 2016Q2

REPORT INFORMATION
  Report Type: Spontaneous
  Country: US (occurrence: US)
  Receive Date: 20141223
  Receipt Date: 20160607
  Transmission Date: 20160815
  Serious: Yes (Hospitalization)
  Sender: FDA-Public Use
  Company Number: US-GLAXOSMITHKLINE-US2014GSK040217

PATIENT
  Sex: Female

DRUGS (7)
  1. VENTOLIN HFA [Suspect]
     Active Substance: ALBUTEROL SULFATE
     Indication: CHRONIC OBSTRUCTIVE PULMONARY DISEASE
     Dosage: UNK, U
  2. ADVAIR DISKUS [Suspect]
     Active Substance: FLUTICASONE PROPIONATE\SALMETEROL XINAFOATE
     Indication: CHRONIC OBSTRUCTIVE PULMONARY DISEASE
     Dosage: UNK, U
  3. ADVAIR DISKUS [Suspect]
     Active Substance: FLUTICASONE PROPIONATE\SALMETEROL XINAFOATE
     Indication: ASTHMA
     Dosage: UNK, U
     Route: 065
     Dates: start: 2000
  4. FLU VACCINE SOLUTION FOR INJECTION [Concomitant]
     Active Substance: INFLUENZA VIRUS VACCINE
  5. LAMICTAL [Suspect]
     Active Substance: LAMOTRIGINE
     Indication: ASTHMA
     Dosage: 200 MG UNK, U
  6. VENTOLIN HFA [Suspect]
     Active Substance: ALBUTEROL SULFATE
     Indication: ASTHMA
     Dosage: UNK
     Route: 065
     Dates: start: 1995
  7. LAMICTAL [Suspect]
     Active Substance: LAMOTRIGINE
     Indication: CHRONIC OBSTRUCTIVE PULMONARY DISEASE
     Dosage: 200 MG, UNK
     Dates: start: 2001

REACTIONS (9)
  - Bronchitis [Unknown]
  - Pharyngeal disorder [Unknown]
  - Aphonia [Unknown]
  - Blood pressure increased [Unknown]
  - Malaise [Not Recovered/Not Resolved]
  - Nasopharyngitis [Unknown]
  - Back pain [Unknown]
  - Off label use [Unknown]
  - Seasonal allergy [Unknown]
